FAERS Safety Report 7717019-5 (Version None)
Quarter: 2011Q3

REPORT INFORMATION
  Report Type: 
  Country: None (occurrence: None)
  Receive Date: 20110829
  Receipt Date: 20110817
  Transmission Date: 20111222
  Serious: Yes (Other)
  Sender: FDA-Public Use
  Company Number: US-RB-031623-11

PATIENT
  Sex: Female

DRUGS (2)
  1. SUBOXONE [Suspect]
     Indication: PRODUCT USED FOR UNKNOWN INDICATION
     Dosage: DOSING INFORMATION UNKNOWN
     Route: 065
  2. SUBUTEX [Suspect]
     Indication: PRODUCT USED FOR UNKNOWN INDICATION
     Dosage: EXACT DOSING INFORMATION UNKNOWN-ATTEMPTED TO WEAN HERSELF OFF
     Route: 065

REACTIONS (5)
  - UMBILICAL CORD ABNORMALITY [None]
  - UNDERDOSE [None]
  - MATERNAL EXPOSURE DURING PREGNANCY [None]
  - FOETAL HYPOKINESIA [None]
  - ABORTION THREATENED [None]
